FAERS Safety Report 9371415 (Version 1)
Quarter: 2013Q2

REPORT INFORMATION
  Report Type: Spontaneous
  Country: US (occurrence: None)
  Receive Date: 20130626
  Receipt Date: 20130626
  Transmission Date: 20140414
  Serious: Yes (Hospitalization)
  Sender: FDA-Public Use
  Company Number: None

PATIENT
  Age: 39 Year
  Sex: Male
  Weight: 135 kg

DRUGS (2)
  1. BEVACIZUMAB [Suspect]
     Indication: GLIOBLASTOMA
     Dosage: 10MG/KG DAYS 1 + 15 INTRAVENOUS
     Route: 042
     Dates: start: 20130513, end: 20130612
  2. CARBOPLATIN [Suspect]
     Indication: GLIOBLASTOMA
     Dosage: AUC 6 DAY 1 INTRAVENOUS
     Route: 042
     Dates: start: 20130513, end: 20130612

REACTIONS (6)
  - Abdominal pain [None]
  - Nausea [None]
  - Headache [None]
  - Vomiting [None]
  - Dehydration [None]
  - Brain oedema [None]
